FAERS Safety Report 8367380-6 (Version None)
Quarter: 2012Q2

REPORT INFORMATION
  Report Type: 
  Country: None (occurrence: None)
  Receive Date: 20120517
  Receipt Date: 20120508
  Transmission Date: 20120825
  Serious: Yes (Hospitalization)
  Sender: FDA-Public Use
  Company Number: JP-VERTEX PHARMACEUTICALS INC.-AE-2012-006746

PATIENT
  Age: 61 Year
  Sex: Female

DRUGS (3)
  1. TELAVIC (TELAPREVIR) [Suspect]
     Route: 048
     Dates: start: 20120405, end: 20120503
  2. PEG-INTRON [Concomitant]
     Route: 051
     Dates: start: 20120405
  3. REBETOL [Concomitant]
     Route: 048
     Dates: start: 20120405

REACTIONS (1)
  - DRUG ERUPTION [None]
